FAERS Safety Report 4678327-8 (Version None)
Quarter: 2005Q2

REPORT INFORMATION
  Report Type: 
  Country: None (occurrence: None)
  Receive Date: 20050531
  Receipt Date: 20050531
  Transmission Date: 20051028
  Serious: Yes (Disabling)
  Sender: FDA-Public Use
  Company Number: None

PATIENT
  Sex: Male
  Weight: 86.1834 kg

DRUGS (1)
  1. DILANTIN [Suspect]
     Indication: EPILEPSY
     Dosage: 100 MG    3X'S/DAY   ORAL
     Route: 048
     Dates: start: 19881216, end: 20030708

REACTIONS (5)
  - ABNORMAL BEHAVIOUR [None]
  - FATIGUE [None]
  - LEARNING DISABILITY [None]
  - MEMORY IMPAIRMENT [None]
  - PERSONALITY CHANGE [None]
